FAERS Safety Report 17166233 (Version 2)
Quarter: 2020Q1

REPORT INFORMATION
  Report Type: Report from Study
  Country: US (occurrence: US)
  Receive Date: 20191217
  Receipt Date: 20200211
  Transmission Date: 20200409
  Serious: No
  Sender: FDA-Public Use
  Company Number: US-009507513-1912USA005595

PATIENT
  Age: 20 Year
  Sex: Female
  Weight: 64.85 kg

DRUGS (2)
  1. IMPLANON [Suspect]
     Active Substance: ETONOGESTREL
     Dosage: 1 DOSAGE FORM
     Route: 059
     Dates: start: 20191209
  2. IMPLANON [Suspect]
     Active Substance: ETONOGESTREL
     Dosage: 1 DOSAGE FORM
     Route: 059
     Dates: start: 20191209

REACTIONS (3)
  - Device difficult to use [Recovered/Resolved]
  - Complication of device insertion [Recovered/Resolved]
  - Product quality issue [Unknown]

NARRATIVE: CASE EVENT DATE: 20191209
